FAERS Safety Report 8843391 (Version 2)
Quarter: 2013Q1

REPORT INFORMATION
  Report Type: Spontaneous
  Country: GB (occurrence: GB)
  Receive Date: 20121016
  Receipt Date: 20130125
  Transmission Date: 20140127
  Serious: Yes (Other)
  Sender: FDA-Public Use
  Company Number: GB-MYLANLABS-2012S1020740

PATIENT
  Age: 70 Year
  Sex: Male

DRUGS (7)
  1. CLOPIDOGREL [Suspect]
     Indication: PRODUCT USED FOR UNKNOWN INDICATION
     Dates: start: 201110
  2. DOXAZOSIN [Interacting]
     Indication: PRODUCT USED FOR UNKNOWN INDICATION
     Dates: start: 200903
  3. LANSOPRAZOLE [Interacting]
     Indication: PRODUCT USED FOR UNKNOWN INDICATION
     Dates: start: 20120903
  4. ASPIRIN [Concomitant]
     Indication: PRODUCT USED FOR UNKNOWN INDICATION
     Dates: start: 200901
  5. ATORVASTATIN [Concomitant]
     Indication: PRODUCT USED FOR UNKNOWN INDICATION
     Dates: start: 2004
  6. ENALAPRIL [Concomitant]
     Indication: PRODUCT USED FOR UNKNOWN INDICATION
     Dates: start: 2006
  7. AMLODIPINE [Concomitant]
     Indication: PRODUCT USED FOR UNKNOWN INDICATION
     Dates: start: 200902

REACTIONS (6)
  - Drug interaction [Unknown]
  - Drug ineffective [Recovering/Resolving]
  - Contusion [Not Recovered/Not Resolved]
  - Epistaxis [Unknown]
  - Nocturia [Unknown]
  - Bleeding time prolonged [Unknown]
